FAERS Safety Report 19375238 (Version 1)
Quarter: 2021Q2

REPORT INFORMATION
  Report Type: Spontaneous
  Country: DK (occurrence: DK)
  Receive Date: 20210604
  Receipt Date: 20210604
  Transmission Date: 20210717
  Serious: Yes (Death, Hospitalization, Other)
  Sender: FDA-Public Use
  Company Number: DK-PFIZER INC-2021580627

PATIENT
  Age: 74 Year
  Sex: Female
  Weight: 59 kg

DRUGS (49)
  1. OXALIPLATIN. [Suspect]
     Active Substance: OXALIPLATIN
     Dosage: 169 MG, 1X/DAY, SINGLE
     Route: 042
     Dates: start: 20201130, end: 20201130
  2. KALIUMCHLORID [Concomitant]
     Active Substance: POTASSIUM CHLORIDE
     Dosage: UNK, ONGOING
     Dates: start: 20181011, end: 20210125
  3. KALIUM [POTASSIUM] [Concomitant]
     Active Substance: POTASSIUM
     Dosage: UNK
     Dates: start: 20201209, end: 20210109
  4. LAMOTRIGIN [Concomitant]
     Active Substance: LAMOTRIGINE
     Dosage: UNK, ONGOING
     Dates: start: 20150702, end: 20210301
  5. ALENDRONATE SODIUM. [Concomitant]
     Active Substance: ALENDRONATE SODIUM
     Dosage: UNK, ONGOING
     Dates: start: 20150602, end: 20210226
  6. GABAPENTIN. [Concomitant]
     Active Substance: GABAPENTIN
     Dosage: UNK, ONGOING
     Dates: start: 20190309, end: 20210301
  7. PREDNISOLONE. [Concomitant]
     Active Substance: PREDNISOLONE
     Dosage: UNK
     Dates: start: 20201130, end: 20201224
  8. MAGNESIUM [Concomitant]
     Active Substance: MAGNESIUM
     Dosage: UNK, ONGOING
     Dates: start: 20210103, end: 20210226
  9. VANCOMYCIN [Concomitant]
     Active Substance: VANCOMYCIN
     Dosage: UNK
     Dates: start: 20201122, end: 20210116
  10. LEVETIRACETAM. [Concomitant]
     Active Substance: LEVETIRACETAM
     Dosage: UNK
     Dates: start: 20201209, end: 20201209
  11. EPCORITAMAB. [Suspect]
     Active Substance: EPCORITAMAB
     Indication: DIFFUSE LARGE B-CELL LYMPHOMA
     Dosage: 24 MG, 1X/DAY, ONGOING, DUOBODY?CD3XCD20
     Route: 058
     Dates: start: 20210106, end: 20210125
  12. PREDNISOLONE. [Concomitant]
     Active Substance: PREDNISOLONE
     Dosage: UNK
     Dates: start: 20201125, end: 20201129
  13. OXYCODONE [Concomitant]
     Active Substance: OXYCODONE
     Dosage: UNK, ONGOING
     Dates: start: 20201122, end: 20210302
  14. CETIRIZIN [Concomitant]
     Active Substance: CETIRIZINE HYDROCHLORIDE
     Dosage: UNK
     Dates: start: 20201130, end: 20210106
  15. FOSCARNET [Concomitant]
     Active Substance: FOSCARNET
     Dosage: UNK
     Dates: start: 20210118, end: 20210121
  16. VALGANCICLOVIR. [Concomitant]
     Active Substance: VALGANCICLOVIR
     Dosage: 900 MG, 2X/DAY, ONGOING
     Route: 048
     Dates: start: 20210122
  17. GEMCITABINE. [Suspect]
     Active Substance: GEMCITABINE
     Dosage: 1620 MG, 1X/DAY, DOSE INTERRUPTED, SINGLE
     Route: 042
     Dates: start: 20210106, end: 20210106
  18. EPCORITAMAB. [Suspect]
     Active Substance: EPCORITAMAB
     Dosage: 24 MG, 1X/DAY, DOSE INTERRUPTED, FULL DOSE DUOBODY?CD3XCD20
     Route: 058
     Dates: start: 20201214, end: 20201221
  19. OXALIPLATIN. [Suspect]
     Active Substance: OXALIPLATIN
     Dosage: 162 MG, 1X/DAY, SINGLE
     Route: 042
     Dates: start: 20210106, end: 20210106
  20. FUROSEMIDE. [Concomitant]
     Active Substance: FUROSEMIDE
     Dosage: UNK, ONGOING
     Dates: start: 20201216
  21. FENOTEROL/IPRATROPIUM BROMIDE [Concomitant]
     Active Substance: FENOTEROL HYDROBROMIDE\IPRATROPIUM BROMIDE
     Dosage: UNK
     Dates: start: 20201209, end: 20201215
  22. MIRTAZAPINE. [Concomitant]
     Active Substance: MIRTAZAPINE
     Dosage: UNK, ONGOING
     Dates: start: 20180621, end: 20210228
  23. ONDANSETRON [Concomitant]
     Active Substance: ONDANSETRON
     Dosage: UNK
     Dates: start: 20201130, end: 20201201
  24. GEMCITABINE. [Suspect]
     Active Substance: GEMCITABINE
     Indication: DIFFUSE LARGE B-CELL LYMPHOMA
     Dosage: 1690 MG, DOSE INTERRUPTED, SINGLE, REGIMEN 1
     Route: 042
     Dates: start: 20201214, end: 20201214
  25. EPCORITAMAB. [Suspect]
     Active Substance: EPCORITAMAB
     Dosage: 0.8 MG, 1X/DAY, INTERMEDIATE DOSE:SINGLE DUOBODY?CD3XCD20
     Route: 058
     Dates: start: 20201207, end: 20201207
  26. DEXAMETHAZON [Concomitant]
     Active Substance: DEXAMETHASONE
     Dosage: UNK
     Dates: start: 20201209, end: 20201212
  27. POTASSIUM GLUCONATE [Concomitant]
     Active Substance: POTASSIUM GLUCONATE
     Dosage: UNK
     Dates: start: 20201227, end: 20201228
  28. FUROSEMIDE. [Concomitant]
     Active Substance: FUROSEMIDE
     Dosage: UNK, ONGOING
     Dates: start: 20201201, end: 20210228
  29. PIPERACILLIN. [Concomitant]
     Active Substance: PIPERACILLIN SODIUM
     Dosage: UNK
     Dates: start: 20101122, end: 20201129
  30. MACROGOL [Concomitant]
     Active Substance: POLYETHYLENE GLYCOLS
     Dosage: UNK, ONGOING
     Dates: start: 20190216, end: 20210226
  31. PIPERACILLIN AND TAZOBACTAM [Concomitant]
     Active Substance: PIPERACILLIN SODIUM\TAZOBACTAM SODIUM
     Dosage: UNK
     Dates: start: 20201205, end: 20201209
  32. GEMCITABINE. [Suspect]
     Active Substance: GEMCITABINE
     Dosage: 1620 MG, SINGLE, REGIMEN 1 ONGOING
     Route: 042
     Dates: start: 20210106
  33. DEXAMETHAZON [Concomitant]
     Active Substance: DEXAMETHASONE
     Dosage: UNK
     Dates: start: 20210113, end: 20210117
  34. MEROPENEM. [Concomitant]
     Active Substance: MEROPENEM
     Dosage: UNK
     Dates: start: 20201209, end: 20201214
  35. GEMCITABINE. [Suspect]
     Active Substance: GEMCITABINE
     Dosage: 1000 MG, SINGLE, REGIMEN 1, DOSE INTERRUPTED, 1Q2W
     Route: 042
     Dates: start: 20201130, end: 20201214
  36. OXALIPLATIN. [Suspect]
     Active Substance: OXALIPLATIN
     Indication: DIFFUSE LARGE B-CELL LYMPHOMA
     Dosage: 100 MG, 1X/DAY, SINGLE
     Route: 042
     Dates: start: 20201130, end: 20201214
  37. PARACETAMOL [Concomitant]
     Active Substance: ACETAMINOPHEN
     Dosage: UNK
     Dates: start: 20200710, end: 20210106
  38. FLUCONAZOLE. [Concomitant]
     Active Substance: FLUCONAZOLE
     Dosage: UNK, ONGOING
     Dates: start: 20201205, end: 20210226
  39. PANTOPRAZOLE [Concomitant]
     Active Substance: PANTOPRAZOLE
     Dosage: UNK, ONGOING
     Dates: start: 20180903, end: 20210226
  40. TOCILIZUMAB. [Concomitant]
     Active Substance: TOCILIZUMAB
     Dosage: UNK
     Dates: start: 20201209, end: 20201210
  41. ALLOPURINOL. [Concomitant]
     Active Substance: ALLOPURINOL
     Dosage: UNK
     Dates: start: 20201130, end: 20201203
  42. PIPERACILLIN/TAZOBACTAM [Suspect]
     Active Substance: PIPERACILLIN SODIUM\TAZOBACTAM SODIUM
     Indication: UROSEPSIS
     Dosage: 12 G, 1X/DAY, DOSAGE FORM: INFUSION
     Route: 042
     Dates: start: 20201227, end: 20210105
  43. GEMCITABINE. [Suspect]
     Active Substance: GEMCITABINE
     Dosage: 1690 MG, 1X/DAY, SINGLE, REGIMEN 1, DOSE INTERRUPTED
     Route: 042
     Dates: start: 20201130, end: 20201130
  44. EPCORITAMAB. [Suspect]
     Active Substance: EPCORITAMAB
     Dosage: 0.16 MG, 1X/DAY, DOSE INTERRUPTED, FULL DOSE DUOBODY?CD3XCD20
     Route: 058
     Dates: start: 20201130, end: 20201130
  45. OXALIPLATIN. [Suspect]
     Active Substance: OXALIPLATIN
     Dosage: 169 MG, 1X/DAY, SINGLE
     Route: 042
     Dates: start: 20201214, end: 20201214
  46. SODIUM PICOSULFATE [Concomitant]
     Active Substance: SODIUM PICOSULFATE
     Dosage: UNK, ONGOING
     Dates: start: 20200210, end: 20210226
  47. TRIMETHOPRIM. [Concomitant]
     Active Substance: TRIMETHOPRIM
     Dosage: UNK, ONGOING
     Dates: start: 20210106, end: 20210226
  48. DIAZEPAM. [Concomitant]
     Active Substance: DIAZEPAM
     Dosage: UNK, ONGOING
     Dates: start: 20200710, end: 20210302
  49. SODIUM CHLORIDE. [Concomitant]
     Active Substance: SODIUM CHLORIDE
     Dosage: UNK
     Dates: start: 20201216, end: 20201217

REACTIONS (4)
  - Urinary tract infection [Recovered/Resolved]
  - Urosepsis [Recovered/Resolved]
  - Off label use [Unknown]
  - Bronchopulmonary aspergillosis [Fatal]

NARRATIVE: CASE EVENT DATE: 20201226
